FAERS Safety Report 12604948 (Version 2)
Quarter: 2016Q3

REPORT INFORMATION
  Report Type: Report from Study
  Country: BR (occurrence: BR)
  Receive Date: 20160728
  Receipt Date: 20160805
  Transmission Date: 20161109
  Serious: Yes (Hospitalization)
  Sender: FDA-Public Use
  Company Number: BR-BAXALTA-2016BLT005314

PATIENT
  Age: 21 Year
  Sex: Male
  Weight: 66 kg

DRUGS (3)
  1. FEIBA [Suspect]
     Active Substance: ANTI-INHIBITOR COAGULANT COMPLEX
     Indication: HAEMORRHAGE
     Dosage: 5000 IU, 1X A DAY, ON DEMAND
     Route: 065
     Dates: start: 20160711, end: 20160713
  2. FEIBA [Suspect]
     Active Substance: ANTI-INHIBITOR COAGULANT COMPLEX
     Indication: LIMB DISCOMFORT
     Dosage: BEGAN ON DEMAND
     Route: 065
     Dates: start: 2006
  3. FEIBA [Suspect]
     Active Substance: ANTI-INHIBITOR COAGULANT COMPLEX
     Indication: JOINT SWELLING
     Dosage: 7000 IU, IN HOSPITAL, ON DEMAND
     Route: 065
     Dates: start: 20160714, end: 20160718

REACTIONS (2)
  - Osteoarthritis [Unknown]
  - Drug ineffective [Recovered/Resolved]

NARRATIVE: CASE EVENT DATE: 20160711
